FAERS Safety Report 8002602-2 (Version None)
Quarter: 2011Q4

REPORT INFORMATION
  Report Type: 
  Country: None (occurrence: None)
  Receive Date: 20111222
  Receipt Date: 20111220
  Transmission Date: 20120403
  Serious: Yes (Hospitalization)
  Sender: FDA-Public Use
  Company Number: US-GLAXOSMITHKLINE-A0948659A

PATIENT
  Age: 35 Year
  Sex: Female

DRUGS (3)
  1. REVATIO [Concomitant]
     Dosage: 40MG THREE TIMES PER DAY
     Route: 048
  2. LASIX [Concomitant]
     Dosage: 20MG UNKNOWN
     Route: 048
  3. FLOLAN [Suspect]
     Indication: LUNG DISORDER
     Dosage: 14NGKM UNKNOWN
     Route: 042
     Dates: start: 20100813

REACTIONS (5)
  - LIVER TRANSPLANT [None]
  - PNEUMONIA [None]
  - THYROID CANCER [None]
  - VOMITING [None]
  - POSTOPERATIVE THROMBOSIS [None]
